FAERS Safety Report 5519182-3 (Version None)
Quarter: 2007Q4

REPORT INFORMATION
  Report Type: 
  Country: None (occurrence: None)
  Receive Date: 20071116
  Receipt Date: 20071107
  Transmission Date: 20080405
  Serious: Yes (Life-Threatening, Hospitalization)
  Sender: FDA-Public Use
  Company Number: JP-JNJFOC-20071005261

PATIENT
  Sex: Female
  Weight: 50 kg

DRUGS (12)
  1. REMICADE [Suspect]
     Dosage: 6 DOSES
     Route: 042
  2. REMICADE [Suspect]
     Dosage: 6 DOSES
     Route: 042
  3. REMICADE [Suspect]
     Dosage: 6 DOSES
     Route: 042
  4. REMICADE [Suspect]
     Dosage: 6 DOSES
     Route: 042
  5. REMICADE [Suspect]
     Dosage: 6 DOSES
     Route: 042
  6. REMICADE [Suspect]
     Indication: RHEUMATOID ARTHRITIS
     Dosage: 6 DOSES
     Route: 042
  7. RHEUMATREX [Suspect]
     Indication: RHEUMATOID ARTHRITIS
     Route: 048
  8. FOLIAMIN [Concomitant]
     Indication: RHEUMATOID ARTHRITIS
     Route: 048
  9. AMLODIN [Concomitant]
     Indication: HYPERTENSION
     Route: 048
  10. ALFAROL [Concomitant]
     Indication: OSTEOPOROSIS
     Route: 048
  11. FAMOTIDINE [Concomitant]
     Indication: GASTRIC ULCER
     Route: 048
  12. LIPITOR [Concomitant]
     Indication: HYPERLIPIDAEMIA
     Route: 048

REACTIONS (1)
  - PNEUMOCYSTIS JIROVECI PNEUMONIA [None]
